FAERS Safety Report 10157149 (Version 5)
Quarter: 2014Q3

REPORT INFORMATION
  Report Type: Spontaneous
  Country: US (occurrence: US)
  Receive Date: 20140507
  Receipt Date: 20140901
  Transmission Date: 20150326
  Serious: Yes (Other)
  Sender: FDA-Public Use
  Company Number: US-PFIZER INC-2014123074

PATIENT
  Age: 58 Year
  Sex: Male
  Weight: 80.73 kg

DRUGS (10)
  1. SUTENT [Suspect]
     Active Substance: SUNITINIB MALATE
     Dosage: 50 MG, CYCLIC (50 MG DAILY, 2 WEEKS ON, 1 WEEK OFF)
     Dates: start: 2014
  2. CRESTOR [Concomitant]
     Active Substance: ROSUVASTATIN CALCIUM
     Dosage: UNK
  3. APRESOLINE HYDROCHLORIDE [Concomitant]
     Active Substance: HYDRALAZINE HYDROCHLORIDE
     Dosage: UNK
  4. OXYCODONE [Concomitant]
     Active Substance: OXYCODONE
     Dosage: UNK
  5. ALLOPURINOL. [Concomitant]
     Active Substance: ALLOPURINOL
     Dosage: UNK
  6. BENICAR [Concomitant]
     Active Substance: OLMESARTAN MEDOXOMIL
     Dosage: UNK
  7. EDARBYCLOR [Concomitant]
     Active Substance: AZILSARTAN KAMEDOXOMIL\CHLORTHALIDONE
     Dosage: UNK
  8. PROBIOTICS [Concomitant]
     Active Substance: PROBIOTICS NOS
     Dosage: UNK
  9. CARVEDILOL. [Concomitant]
     Active Substance: CARVEDILOL
     Dosage: UNK
  10. IMODIUM [Concomitant]
     Active Substance: LOPERAMIDE HYDROCHLORIDE
     Dosage: UNK

REACTIONS (20)
  - Gout [Recovered/Resolved]
  - Diarrhoea [Unknown]
  - Dizziness [Unknown]
  - Yellow skin [Unknown]
  - Vomiting [Unknown]
  - Hair colour changes [Unknown]
  - Pain in extremity [Unknown]
  - Fatigue [Unknown]
  - Abdominal distension [Unknown]
  - Dry skin [Unknown]
  - Haemorrhoids [Unknown]
  - Blood pressure increased [Unknown]
  - Pain [Unknown]
  - Rash [Unknown]
  - Increased tendency to bruise [Unknown]
  - Nausea [Unknown]
  - Dyspepsia [Unknown]
  - Bleeding time prolonged [Unknown]
  - Impaired healing [Unknown]
  - Gout [Unknown]
